FAERS Safety Report 6396584-7 (Version None)
Quarter: 2009Q4

REPORT INFORMATION
  Report Type: 
  Country: None (occurrence: None)
  Receive Date: 20091012
  Receipt Date: 20091007
  Transmission Date: 20100525
  Serious: Yes (Hospitalization)
  Sender: FDA-Public Use
  Company Number: US-JNJFOC-20060806785

PATIENT
  Sex: Female
  Weight: 66.7 kg

DRUGS (7)
  1. GOLIMUMAB [Suspect]
     Route: 058
  2. GOLIMUMAB [Suspect]
     Route: 058
  3. GOLIMUMAB [Suspect]
     Indication: RHEUMATOID ARTHRITIS
     Route: 058
  4. ATENOL [Concomitant]
     Route: 048
  5. XANAX [Concomitant]
     Route: 048
  6. LUNESTA [Concomitant]
     Route: 048
  7. DARVOCET [Concomitant]
     Route: 048

REACTIONS (1)
  - LYMPHOMA [None]
